FAERS Safety Report 9222661 (Version 1)
Quarter: 2013Q1

REPORT INFORMATION
  Report Type: Spontaneous
  Country: US (occurrence: None)
  Receive Date: 20120914
  Receipt Date: 20120914
  Transmission Date: 20140127
  Serious: Yes (Hospitalization)
  Sender: FDA-Public Use
  Company Number: JPI-P-021732

PATIENT
  Age: 66 Year
  Sex: Male

DRUGS (3)
  1. XYREM (500 MILLIGRAM/MILLILITERS, SOLUTION) (SODIUM OXYBATE) [Suspect]
     Indication: CATAPLEXY
     Dosage: 2.25 GM, 2 IN 1 D
     Route: 048
     Dates: start: 20111019
  2. IRBESARTAN AND HYDROCHLOROTHIAZIDE [Concomitant]
  3. MODAFINIL [Concomitant]

REACTIONS (4)
  - Arthritis [None]
  - Arthralgia [None]
  - Cartilage injury [None]
  - Procedural pain [None]
